FAERS Safety Report 23678186 (Version 1)
Quarter: 2024Q1

REPORT INFORMATION
  Report Type: Spontaneous
  Country: US (occurrence: None)
  Receive Date: 20240326
  Receipt Date: 20240326
  Transmission Date: 20240410
  Serious: Yes (Death, Life-Threatening, Hospitalization)
  Sender: FDA-Public Use
  Company Number: None

PATIENT
  Age: 68 Year
  Sex: Male
  Weight: 110.25 kg

DRUGS (10)
  1. OZEMPIC [Suspect]
     Active Substance: SEMAGLUTIDE
     Indication: Type 2 diabetes mellitus
     Dosage: OTHER FREQUENCY : ONCE A WEEK;?
     Route: 058
     Dates: start: 20220615, end: 20240118
  2. METFORMIN [Concomitant]
  3. SPIRONOLACTONE [Concomitant]
  4. CARVEDILOL [Concomitant]
  5. FENOFIBRATE [Concomitant]
     Active Substance: FENOFIBRATE
  6. HYDROCHLOROTHIAZIDE\LISINOPRIL [Concomitant]
     Active Substance: HYDROCHLOROTHIAZIDE\LISINOPRIL
  7. ATORVASTATIN [Concomitant]
  8. MAGNESIUM [Concomitant]
  9. low dose aspirin [Concomitant]
  10. multivitamin [Concomitant]

REACTIONS (18)
  - Sudden death [None]
  - Acute kidney injury [None]
  - Pancreatitis acute [None]
  - Pancreatitis necrotising [None]
  - Hepatic steatosis [None]
  - Gallbladder disorder [None]
  - Tachycardia [None]
  - Hypertension [None]
  - Blood potassium increased [None]
  - Blood magnesium decreased [None]
  - Blood glucose increased [None]
  - Feeling hot [None]
  - Urine output decreased [None]
  - Liver disorder [None]
  - Heart rate decreased [None]
  - Oxygen saturation decreased [None]
  - Loss of consciousness [None]
  - Cardio-respiratory arrest [None]

NARRATIVE: CASE EVENT DATE: 20240124
